FAERS Safety Report 9383660 (Version 1)
Quarter: 2013Q3

REPORT INFORMATION
  Report Type: Spontaneous
  Country: US (occurrence: US)
  Receive Date: 20130704
  Receipt Date: 20130704
  Transmission Date: 20140515
  Serious: Yes (Other)
  Sender: FDA-Public Use
  Company Number: US-PFIZER INC-2013197778

PATIENT
  Age: 48 Year
  Sex: Female
  Weight: 74.8 kg

DRUGS (18)
  1. PROCARDIA [Suspect]
     Indication: HYPERTENSION
     Dosage: 50 MG, 1X/DAY
     Route: 065
  2. ALTACE [Suspect]
     Dosage: 10 MG, 1X/DAY
     Route: 065
  3. SPIRIVA [Suspect]
     Indication: EMPHYSEMA
     Dosage: 80 UG, 1X/DAY
     Route: 065
  4. PLAVIX [Concomitant]
     Dosage: 75 MG, 1X/DAY
  5. CALCIUM [Concomitant]
     Dosage: 600 MG, 2X/DAY
  6. VITAMIN D3 [Concomitant]
     Dosage: 5000 IU, 1X/DAY
  7. VESICARE [Concomitant]
     Dosage: 5 MG, 1X/DAY
  8. FOLPLEX [Concomitant]
     Dosage: UNK
  9. NEXIUM [Concomitant]
     Dosage: 40 MG, 2X/DAY
  10. MAGNESIUM [Concomitant]
     Dosage: 250 MG, 2X/DAY
  11. TRILEPTAL [Concomitant]
     Dosage: 1200MG IN MORNING, 600MG IN AFTERNOON AND 1200MG IN EVENING (3X/DAY)
  12. CRESTOR [Concomitant]
     Dosage: 20 MG, 1X/DAY
  13. ONFI [Concomitant]
     Indication: CONVULSION
     Dosage: 10 MG, 2X/DAY
  14. XOPENEX [Concomitant]
     Dosage: 2 DF, AS NEEDED
  15. ZETIA [Concomitant]
     Dosage: 10 MG, 1X/DAY
  16. LOVAZA [Concomitant]
     Dosage: 1 G, 2X/DAY
  17. VIIBRYD [Concomitant]
     Dosage: 40 MG, 1X/DAY
  18. NIASPAN [Concomitant]
     Dosage: 300 MG, 1X/DAY

REACTIONS (1)
  - Osteitis deformans [Unknown]
